FAERS Safety Report 5937873-7 (Version None)
Quarter: 2008Q4

REPORT INFORMATION
  Report Type: 
  Country: None (occurrence: None)
  Receive Date: 20081031
  Receipt Date: 20081021
  Transmission Date: 20090506
  Serious: Yes (Other)
  Sender: FDA-Public Use
  Company Number: US-JNJFOC-20081005380

PATIENT
  Age: 52 Year
  Sex: Female

DRUGS (3)
  1. INFLIXIMAB [Suspect]
     Indication: DRUG USE FOR UNKNOWN INDICATION
     Dosage: HAD 41 MONTHS OF TREATMENT
     Route: 042
  2. PREDNISONE [Concomitant]
     Indication: TAKAYASU'S ARTERITIS
  3. IMMUNOSUPPRESSIVE THERAPY [Concomitant]
     Indication: TAKAYASU'S ARTERITIS
     Dosage: ON A MEAN OF 2 ADDITIONAL NON-SPECIFIED  IMMUNOSUPPRESSIVE THERAPIES

REACTIONS (1)
  - BREAST CANCER [None]
